FAERS Safety Report 12932392 (Version 2)
Quarter: 2016Q4

REPORT INFORMATION
  Report Type: Report from Study
  Country: DE (occurrence: DE)
  Receive Date: 20161111
  Receipt Date: 20161111
  Transmission Date: 20170207
  Serious: Yes (Other)
  Sender: FDA-Public Use
  Company Number: DE-CELGENEUS-DEU-2016110538

PATIENT

DRUGS (1)
  1. OTEZLA [Suspect]
     Active Substance: APREMILAST
     Indication: PSORIATIC ARTHROPATHY
     Route: 065

REACTIONS (6)
  - Migraine [Unknown]
  - Drug ineffective [Unknown]
  - Diarrhoea [Unknown]
  - Drug intolerance [Unknown]
  - Respiratory disorder [Unknown]
  - Nausea [Unknown]
